FAERS Safety Report 21831374 (Version 1)
Quarter: 2023Q1

REPORT INFORMATION
  Report Type: Spontaneous
  Country: US (occurrence: US)
  Receive Date: 20230106
  Receipt Date: 20230106
  Transmission Date: 20230418
  Serious: No
  Sender: FDA-Public Use
  Company Number: US-PFIZER INC-202300004502

PATIENT
  Sex: Female

DRUGS (1)
  1. AROMASIN [Suspect]
     Active Substance: EXEMESTANE
     Dosage: UNK
     Dates: start: 2009

REACTIONS (5)
  - Pain in extremity [Unknown]
  - Bone pain [Unknown]
  - Headache [Unknown]
  - Feeling abnormal [Unknown]
  - Memory impairment [Unknown]
